FAERS Safety Report 10045829 (Version 1)
Quarter: 2014Q1

REPORT INFORMATION
  Report Type: Spontaneous
  Country: US (occurrence: US)
  Receive Date: 20140328
  Receipt Date: 20140328
  Transmission Date: 20141002
  Serious: Yes (Other)
  Sender: FDA-Public Use
  Company Number: US-ASTRAZENECA-2014SE20289

PATIENT
  Age: 61 Year
  Sex: Male
  Weight: 104.3 kg

DRUGS (10)
  1. METOPROLOL SUCCINATE [Suspect]
     Indication: HYPERTENSION
     Route: 048
     Dates: start: 2000
  2. METOPROLOL SUCCINATE [Suspect]
     Indication: CARDIAC DISORDER
     Route: 048
     Dates: start: 2000
  3. LISINOPRIL [Suspect]
     Indication: HYPERTENSION
     Route: 048
     Dates: start: 2000
  4. ABILIFY [Suspect]
     Indication: DEPRESSION
     Dates: start: 2009, end: 20140317
  5. FLOMAX [Concomitant]
     Indication: HYPERTENSION
     Route: 048
     Dates: start: 2004
  6. CYMBALTA [Concomitant]
     Indication: DEPRESSION
     Route: 048
     Dates: start: 2002, end: 20140317
  7. TRAMADOL HCL [Concomitant]
     Indication: PAIN
     Dosage: 50  MG OR 100 MG QID
     Route: 048
     Dates: start: 2005
  8. CLONIPINE [Concomitant]
     Indication: ANXIETY
     Route: 048
     Dates: start: 2000
  9. BENTYL [Concomitant]
     Indication: COLITIS ULCERATIVE
     Route: 048
     Dates: start: 1980
  10. ZANAFLEX [Concomitant]
     Indication: MUSCLE SPASMS
     Route: 048

REACTIONS (10)
  - Spinal fracture [Unknown]
  - Lower limb fracture [Unknown]
  - Cerebrovascular accident [Unknown]
  - Visual field defect [Not Recovered/Not Resolved]
  - Weight increased [Unknown]
  - Body height decreased [Not Recovered/Not Resolved]
  - Benign prostatic hyperplasia [Not Recovered/Not Resolved]
  - Fibromyalgia [Unknown]
  - Incontinence [Unknown]
  - Muscle spasms [Unknown]
